FAERS Safety Report 4523229-0 (Version None)
Quarter: 2004Q4

REPORT INFORMATION
  Report Type: 
  Country: None (occurrence: None)
  Receive Date: 20041209
  Receipt Date: 20041209
  Transmission Date: 20050328
  Serious: Yes (Death)
  Sender: FDA-Public Use
  Company Number: None

PATIENT
  Age: 57 Year
  Sex: Male
  Weight: 86.1834 kg

DRUGS (2)
  1. TOPAMAX [Suspect]
     Indication: CONVULSION
     Dosage: 200 MG 2X DAY
     Dates: start: 20021029, end: 20021031
  2. DILANTIN [Suspect]
     Dosage: 500 MG/DAY

REACTIONS (2)
  - CONVULSION [None]
  - FALL [None]
